FAERS Safety Report 5289799-2 (Version None)
Quarter: 2007Q2

REPORT INFORMATION
  Report Type: 
  Country: None (occurrence: None)
  Receive Date: 20070406
  Receipt Date: 20070326
  Transmission Date: 20071010
  Serious: Yes (Hospitalization, Other)
  Sender: FDA-Public Use
  Company Number: US-PFIZER INC-2006071672

PATIENT
  Sex: Male
  Weight: 84.4 kg

DRUGS (2)
  1. CELEBREX [Suspect]
     Indication: OSTEOARTHRITIS
     Route: 048
  2. CELEBREX [Suspect]
     Indication: INTERVERTEBRAL DISC DEGENERATION

REACTIONS (2)
  - ACUTE MYOCARDIAL INFARCTION [None]
  - CEREBROVASCULAR DISORDER [None]
